FAERS Safety Report 9520173 (Version 2)
Quarter: 2014Q1

REPORT INFORMATION
  Report Type: Spontaneous
  Country: US (occurrence: US)
  Receive Date: 20130912
  Receipt Date: 20140117
  Transmission Date: 20141002
  Serious: Yes (Hospitalization)
  Sender: FDA-Public Use
  Company Number: US-GLAXOSMITHKLINE-A1041246A

PATIENT
  Age: 54 Year
  Sex: Female

DRUGS (2)
  1. COREG CR [Suspect]
     Indication: CARDIAC DISORDER
     Dosage: 10MG UNKNOWN
     Route: 065
     Dates: start: 20130925
  2. VENTOLIN HFA [Concomitant]
     Dates: start: 20120616

REACTIONS (2)
  - Investigation [Unknown]
  - Cardiac disorder [Unknown]
